FAERS Safety Report 7142329-2 (Version None)
Quarter: 2010Q4

REPORT INFORMATION
  Report Type: 
  Country: None (occurrence: None)
  Receive Date: 20101207
  Receipt Date: 20101129
  Transmission Date: 20110411
  Serious: Yes (Death)
  Sender: FDA-Public Use
  Company Number: JP-PFIZER INC-2010153826

PATIENT
  Age: 70 Year
  Sex: Male

DRUGS (3)
  1. LYRICA [Suspect]
     Indication: VIITH NERVE PARALYSIS
     Dosage: 300 MG, 2X/DAY
     Route: 048
     Dates: start: 20101001, end: 20101115
  2. ANPLAG [Concomitant]
     Indication: ARTERIOSCLEROSIS OBLITERANS
     Dosage: UNK
     Route: 048
     Dates: start: 20090721, end: 20101115
  3. OPALMON [Concomitant]
     Indication: SPINAL COLUMN STENOSIS
     Dosage: UNK
     Route: 048
     Dates: start: 20090721, end: 20101115

REACTIONS (2)
  - FALL [None]
  - SPINAL COLUMN INJURY [None]
